FAERS Safety Report 23105511 (Version 2)
Quarter: 2024Q1

REPORT INFORMATION
  Report Type: Spontaneous
  Country: JP (occurrence: JP)
  Receive Date: 20231025
  Receipt Date: 20240104
  Transmission Date: 20240410
  Serious: Yes (Hospitalization, Other)
  Sender: FDA-Public Use
  Company Number: JP-AMGEN-JPNSP2023170142

PATIENT
  Sex: Male

DRUGS (2)
  1. BLINCYTO [Suspect]
     Active Substance: BLINATUMOMAB
     Indication: B precursor type acute leukaemia
     Dosage: 9 MICROGRAM, CONTINUING 24DIV CENTRAL VENOUS
     Route: 042
     Dates: start: 20230920, end: 20230921
  2. BLINCYTO [Suspect]
     Active Substance: BLINATUMOMAB
     Dosage: 9 MICROGRAM, CENTRAL VENOUS
     Route: 042
     Dates: start: 20230926, end: 2023

REACTIONS (7)
  - Nervous system disorder [Recovered/Resolved]
  - Seizure [Recovered/Resolved]
  - Cytokine release syndrome [Recovered/Resolved]
  - Postictal state [Unknown]
  - Erythema [Unknown]
  - Contusion [Unknown]
  - Mouth injury [Unknown]

NARRATIVE: CASE EVENT DATE: 20230901
